FAERS Safety Report 23178860 (Version 4)
Quarter: 2024Q3

REPORT INFORMATION
  Report Type: Spontaneous
  Country: CA (occurrence: CA)
  Receive Date: 20231113
  Receipt Date: 20240815
  Transmission Date: 20241017
  Serious: Yes (Other)
  Sender: PFIZER
  Company Number: CA-PFIZER INC-PV202300181768

PATIENT
  Age: 73 Year
  Sex: Female
  Weight: 89 kg

DRUGS (9)
  1. MEKTOVI [Suspect]
     Active Substance: BINIMETINIB
     Indication: Metastatic malignant melanoma
     Dosage: UNK
     Dates: start: 20230914
  2. MEKTOVI [Suspect]
     Active Substance: BINIMETINIB
     Dosage: UNK
     Dates: start: 2023, end: 2023
  3. MEKTOVI [Suspect]
     Active Substance: BINIMETINIB
     Dosage: UNK
     Dates: start: 20231101
  4. MEKTOVI [Suspect]
     Active Substance: BINIMETINIB
     Dosage: 45 MG, 2X/DAY
     Route: 048
  5. BRAFTOVI [Suspect]
     Active Substance: ENCORAFENIB
     Indication: Metastatic malignant melanoma
     Dosage: UNK
     Dates: start: 20230914
  6. BRAFTOVI [Suspect]
     Active Substance: ENCORAFENIB
     Dosage: UNK
     Dates: start: 2023, end: 2023
  7. BRAFTOVI [Suspect]
     Active Substance: ENCORAFENIB
     Dosage: UNK
     Dates: start: 20231101
  8. BRAFTOVI [Suspect]
     Active Substance: ENCORAFENIB
     Dosage: 450 MG, 1X/DAY
     Route: 048
  9. ONDANSETRON HYDROCHLORIDE [Concomitant]
     Active Substance: ONDANSETRON HYDROCHLORIDE
     Dosage: 8 MG, 2X/DAY (PRN)
     Route: 048

REACTIONS (3)
  - Spinal operation [Unknown]
  - Weight decreased [Unknown]
  - Nausea [Unknown]

NARRATIVE: CASE EVENT DATE: 20230101
